FAERS Safety Report 6764387-7 (Version None)
Quarter: 2010Q2

REPORT INFORMATION
  Report Type: 
  Country: None (occurrence: None)
  Receive Date: 20100610
  Receipt Date: 20100531
  Transmission Date: 20101027
  Serious: Yes (Hospitalization, Other)
  Sender: FDA-Public Use
  Company Number: US-PFIZER INC-2010069066

PATIENT
  Age: 46 Year
  Sex: Female

DRUGS (6)
  1. SERTRALINE HCL [Suspect]
     Dosage: 50 MG, 1X/DAY
  2. FENTANYL CITRATE [Interacting]
     Indication: ANALGESIC THERAPY
     Dosage: 50 UG, UNK
     Route: 042
  3. MIDAZOLAM [Concomitant]
     Dosage: 2 MG, UNK
  4. PROPOFOL [Concomitant]
     Dosage: 60 MG, UNK
  5. PROPOFOL [Concomitant]
     Dosage: 40 MG, UNK
  6. CETIRIZINE [Concomitant]
     Indication: SEASONAL ALLERGY
     Dosage: 10 MG, AS NEEDED

REACTIONS (2)
  - DRUG INTERACTION [None]
  - SEROTONIN SYNDROME [None]
